FAERS Safety Report 4497451-6 (Version None)
Quarter: 2004Q4

REPORT INFORMATION
  Report Type: 
  Country: None (occurrence: None)
  Receive Date: 20041110
  Receipt Date: 20041005
  Transmission Date: 20050328
  Serious: Yes (Hospitalization, Other)
  Sender: FDA-Public Use
  Company Number: DE-MERCK-0410DEU00134

PATIENT
  Age: 50 Year
  Sex: Female
  Weight: 77 kg

DRUGS (8)
  1. VIOXX [Suspect]
     Indication: SPINAL DISORDER
     Route: 048
     Dates: start: 20020101
  2. VIOXX [Suspect]
     Indication: HEADACHE
     Route: 048
     Dates: start: 20020101
  3. ATORVASTATIN CALCIUM [Concomitant]
     Route: 065
  4. HYDROCHLOROTHIAZIDE [Concomitant]
     Route: 065
  5. ATENOLOL [Concomitant]
     Route: 065
  6. CLOPIDOGREL BISULFATE [Concomitant]
     Route: 065
  7. CARBAMAZEPINE [Concomitant]
     Route: 065
  8. ESOMEPRAZOLE MAGNESIUM [Concomitant]
     Route: 065

REACTIONS (1)
  - REVERSIBLE ISCHAEMIC NEUROLOGICAL DEFICIT [None]
